FAERS Safety Report 16765591 (Version 1)
Quarter: 2019Q3

REPORT INFORMATION
  Report Type: Spontaneous
  Country: BR (occurrence: BR)
  Receive Date: 20190903
  Receipt Date: 20190903
  Transmission Date: 20191005
  Serious: Yes (Hospitalization)
  Sender: FDA-Public Use
  Company Number: BR-SA-2019SA175721

PATIENT
  Sex: Female

DRUGS (13)
  1. SOLIQUA 100/33 [Suspect]
     Active Substance: INSULIN GLARGINE\LIXISENATIDE
     Dosage: 18 IU, QD
     Route: 065
     Dates: start: 20190612
  2. LASIX [Concomitant]
     Active Substance: FUROSEMIDE
     Indication: BLOOD PRESSURE MEASUREMENT
     Dosage: 1 DF, QD,1 TABLET EVERY DAY IN THE MORNING
     Route: 065
  3. CILOSTAZOL. [Concomitant]
     Active Substance: CILOSTAZOL
     Indication: VARICOSE VEIN
     Route: 065
  4. DAFLON [DIOSMIN;HESPERIDIN] [Concomitant]
     Indication: STENT PLACEMENT
     Dosage: 1 DF, QD,1 TABLET PER DAY
     Route: 065
  5. PROCORALAN [Concomitant]
     Active Substance: IVABRADINE
     Indication: ANGINA PECTORIS
     Dosage: EVERY DAY AFTER LUNCH
     Route: 065
  6. MONOCORDIL [Concomitant]
     Active Substance: ISOSORBIDE MONONITRATE
     Route: 065
  7. MANIVASC [Concomitant]
     Active Substance: MANIDIPINE HYDROCHLORIDE
     Indication: BLOOD PRESSURE MEASUREMENT
     Dosage: UNK UNK, HS,EVERY DAY AT NIGHT
     Route: 065
  8. METFORMIN [Concomitant]
     Active Substance: METFORMIN HYDROCHLORIDE
     Indication: DIABETES MELLITUS
     Dosage: 2 DF, QD,2 TABLETS IN THE MORNING
     Route: 065
  9. VYTORIN [Concomitant]
     Active Substance: EZETIMIBE\SIMVASTATIN
     Indication: BLOOD CHOLESTEROL
     Dosage: UNK UNK, HS,EVERY DAY AT NIGHT
     Route: 065
  10. SOLIQUA 100/33 [Suspect]
     Active Substance: INSULIN GLARGINE\LIXISENATIDE
     Indication: TYPE 2 DIABETES MELLITUS
     Dosage: 18 IU, QD
     Route: 065
     Dates: start: 2016
  11. STANGLIT [Concomitant]
     Active Substance: PIOGLITAZONE HYDROCHLORIDE
     Indication: DIABETES MELLITUS
     Dosage: 1 DF, QD
     Route: 065
  12. EFFORTIL [Concomitant]
     Active Substance: ETILEFRINE HYDROCHLORIDE
     Indication: BLOOD PRESSURE MEASUREMENT
     Route: 065
  13. FORXIGA [Concomitant]
     Active Substance: DAPAGLIFLOZIN
     Indication: DIABETES MELLITUS
     Dosage: 1 DF, QD
     Route: 065

REACTIONS (5)
  - Stent placement [Unknown]
  - Spinal deformity [Unknown]
  - Spinal pain [Unknown]
  - Product storage error [Unknown]
  - Skin discolouration [Unknown]

NARRATIVE: CASE EVENT DATE: 201901
